FAERS Safety Report 10388951 (Version 1)
Quarter: 2014Q1

REPORT INFORMATION
  Report Type: Spontaneous
  Country: US (occurrence: None)
  Receive Date: 20140306
  Receipt Date: 20140306
  Transmission Date: 20141002
  Serious: Yes (Other)
  Sender: FDA-Public Use
  Company Number: 163-21880-13021570

PATIENT
  Age: 81 Year
  Sex: Female
  Weight: 80.29 kg

DRUGS (12)
  1. REVLIMID (LENALIDOMIDE) (15 MILLIGRAM, CAPSULES) [Suspect]
     Indication: LYMPHOMA
     Route: 048
     Dates: start: 20130108
  2. PANTOPRAZOLE [Concomitant]
  3. RITUXIMAB [Concomitant]
  4. ASPIRIN (ACETYLSALICYLIC ACID) [Concomitant]
  5. VINCRISTINE [Concomitant]
  6. VITAMIN B12 (CYANOCOBALAMIN) [Concomitant]
  7. DEXAMETHASONE [Concomitant]
  8. METFORMIN [Concomitant]
  9. VALACYCLOVIR (VALACICLOVIR HYDROCHLORIDE) [Concomitant]
  10. DAPSONE [Concomitant]
  11. DONEPEZIL [Concomitant]
  12. NAMENDA (MEMANTINE HYDROCHLORIDE) [Concomitant]

REACTIONS (1)
  - Thrombosis [None]
